FAERS Safety Report 12812511 (Version 1)
Quarter: 2016Q4

REPORT INFORMATION
  Report Type: Not Available
  Country: GB (occurrence: GB)
  Receive Date: 20161005
  Receipt Date: 20161005
  Transmission Date: 20170207
  Serious: Yes (Disabling)
  Sender: FDA-Public Use
  Company Number: GB-PURDUE PHARMA-GBR-2016-0040734

PATIENT
  Age: 88 Year
  Sex: Female

DRUGS (20)
  1. CETIRIZINE [Concomitant]
     Active Substance: CETIRIZINE HYDROCHLORIDE
     Dosage: 1 DF, DAILY
     Dates: start: 20151224
  2. LISINOPRIL. [Concomitant]
     Active Substance: LISINOPRIL
     Dosage: 1 DF, DAILY
     Dates: start: 20160307
  3. VOLTAROL [Concomitant]
     Active Substance: DICLOFENAC SODIUM
     Dosage: 1 DF, PRN
     Dates: start: 20160904
  4. METFORMIN [Concomitant]
     Active Substance: METFORMIN HYDROCHLORIDE
     Dosage: 1 DF, DAILY
     Dates: start: 20151224
  5. AMLODIPINE [Concomitant]
     Active Substance: AMLODIPINE BESYLATE
     Dosage: 1 DF, DAILY
     Dates: start: 20151224
  6. BISOPROLOL [Concomitant]
     Active Substance: BISOPROLOL
     Dosage: 1 DF, DAILY
     Dates: start: 20151224
  7. CAPSAICIN. [Concomitant]
     Active Substance: CAPSAICIN
     Dosage: UNK
     Dates: start: 20160624, end: 20160704
  8. CITALOPRAM [Concomitant]
     Active Substance: CITALOPRAM HYDROBROMIDE
     Dosage: 1 DF, DAILY
     Dates: start: 20160622
  9. DULOXETINE. [Concomitant]
     Active Substance: DULOXETINE
     Dosage: 1 DF, DAILY
     Dates: start: 20160905
  10. LACTULOSE. [Concomitant]
     Active Substance: LACTULOSE
     Dosage: 10 ML, PRN
     Dates: start: 20160904
  11. PARACETAMOL [Concomitant]
     Active Substance: ACETAMINOPHEN
     Dosage: UNK
     Dates: start: 20151224
  12. BETAHISTINE [Concomitant]
     Active Substance: BETAHISTINE
     Dosage: 1 DF, TID
     Dates: start: 20160115
  13. TEARS NATURALE                     /00635701/ [Concomitant]
     Dosage: 1 GTT, PRN
     Dates: start: 20150505
  14. FERROUS SULFATE. [Concomitant]
     Active Substance: FERROUS SULFATE
     Dosage: 1 DF, BID
     Dates: start: 20160203
  15. IBUPROFEN. [Concomitant]
     Active Substance: IBUPROFEN
     Dosage: 1 DF, TID
     Dates: start: 20160817, end: 20160827
  16. ISOSORBID MONONITRATE [Concomitant]
     Active Substance: ISOSORBIDE MONONITRATE
     Dosage: 1 DF, BID
     Dates: start: 20151224
  17. ZOPICLONE [Concomitant]
     Active Substance: ZOPICLONE
     Dosage: 1 DF, PRN
     Dates: start: 20160721, end: 20160818
  18. MORPHINE SULFATE. [Suspect]
     Active Substance: MORPHINE SULFATE
     Indication: PRODUCT USED FOR UNKNOWN INDICATION
     Dosage: UNK
     Route: 065
     Dates: start: 20160912
  19. CODEINE PHOSPHATE [Concomitant]
     Active Substance: CODEINE PHOSPHATE
     Dosage: 1 DF, BID
     Dates: start: 20160912
  20. LANSOPRAZOLE. [Concomitant]
     Active Substance: LANSOPRAZOLE
     Dosage: 1 DF, DAILY
     Dates: start: 20160201

REACTIONS (1)
  - Dreamy state [Recovered/Resolved]

NARRATIVE: CASE EVENT DATE: 20160912
